FAERS Safety Report 5267343-3 (Version None)
Quarter: 2007Q1

REPORT INFORMATION
  Report Type: 
  Country: None (occurrence: None)
  Receive Date: 20070312
  Receipt Date: 20070227
  Transmission Date: 20070707
  Serious: Yes (Other)
  Sender: FDA-Public Use
  Company Number: 070228-0000243

PATIENT
  Age: 21 Year
  Sex: Male

DRUGS (3)
  1. ELSPAR [Suspect]
     Indication: ACUTE LYMPHOCYTIC LEUKAEMIA
  2. VINCRISTINE [Suspect]
  3. DEXAMETHASONE [Suspect]
     Indication: ACUTE LYMPHOCYTIC LEUKAEMIA

REACTIONS (14)
  - BACTERIAL INFECTION [None]
  - DISEASE PROGRESSION [None]
  - FUNGAL INFECTION [None]
  - HAEMOPTYSIS [None]
  - MUCOSAL INFLAMMATION [None]
  - MUSCULOSKELETAL DISORDER [None]
  - PYELONEPHRITIS FUNGAL [None]
  - RENAL DISORDER [None]
  - RESPIRATORY DISORDER [None]
  - SKIN NECROSIS [None]
  - SUPERINFECTION [None]
  - SYSTEMIC MYCOSIS [None]
  - THYROID DISORDER [None]
  - ZYGOMYCOSIS [None]
